FAERS Safety Report 8704749 (Version 5)
Quarter: 2013Q3

REPORT INFORMATION
  Report Type: Report from Study
  Country: US (occurrence: US)
  Receive Date: 20120803
  Receipt Date: 20130916
  Transmission Date: 20140515
  Serious: Yes (Hospitalization, Other)
  Sender: FDA-Public Use
  Company Number: US-ELI_LILLY_AND_COMPANY-US201203007335

PATIENT
  Age: 72 Year
  Sex: Female
  Weight: 93.88 kg

DRUGS (29)
  1. TERIPARATIDE [Suspect]
     Indication: OSTEOPOROSIS
     Dosage: 20 UG, QD
     Dates: start: 20120229
  2. TERIPARATIDE [Suspect]
     Indication: OSTEOPENIA
     Dosage: 20 UG, QD
     Dates: start: 201208
  3. PREDNISONE [Concomitant]
  4. MULTIVITAMIN                       /00831701/ [Concomitant]
  5. VENLAFAXINE [Concomitant]
  6. CULTURELLE [Concomitant]
  7. PANTOPRAZOLE SODIUM [Concomitant]
  8. PRIMIDONE [Concomitant]
  9. LYRICA [Concomitant]
  10. LOMOTIL [Concomitant]
  11. AMOXICILLIN [Concomitant]
     Dosage: BEFORE DENTIST APPOINTMENTS
  12. VITAMIN B2                         /00154901/ [Concomitant]
  13. MIRALAX                            /00754501/ [Concomitant]
  14. POTASSIUM [Concomitant]
  15. CHLORTHALIDONE [Concomitant]
  16. DILTIAZEM [Concomitant]
  17. FISH OIL [Concomitant]
  18. MAGNESIUM OXIDE [Concomitant]
  19. COLACE [Concomitant]
  20. ZYRTEC [Concomitant]
  21. DRAMAMINE [Concomitant]
  22. FLEXERIL                           /00428402/ [Concomitant]
  23. MECLIZINE                          /00072801/ [Concomitant]
  24. METHOCARBAMOL [Concomitant]
  25. EXCEDRIN                           /00110301/ [Concomitant]
  26. ORABASE                            /00623201/ [Concomitant]
  27. COMPAZINE                          /00013302/ [Concomitant]
  28. TRIAMCINOLONE ACETONIDE [Concomitant]
     Dosage: 0.1%
  29. GABATINE [Concomitant]

REACTIONS (20)
  - Cholelithiasis [Recovered/Resolved]
  - Dehydration [Unknown]
  - Electrolyte depletion [Unknown]
  - Diarrhoea [Unknown]
  - Clostridium difficile infection [Unknown]
  - Confusional state [Unknown]
  - Disorientation [Unknown]
  - Cystitis [Unknown]
  - Arrhythmia [Unknown]
  - Gallbladder disorder [Unknown]
  - Cellulitis [Recovering/Resolving]
  - Feeling abnormal [Unknown]
  - Abdominal pain [Unknown]
  - Insomnia [Unknown]
  - Hepatic enzyme abnormal [Unknown]
  - Memory impairment [Unknown]
  - Fall [Unknown]
  - Foot fracture [Unknown]
  - Rib fracture [Unknown]
  - Fractured coccyx [Unknown]
